FAERS Safety Report 26203603 (Version 1)
Quarter: 2025Q4

REPORT INFORMATION
  Report Type: Spontaneous
  Country: US (occurrence: US)
  Receive Date: 20251226
  Receipt Date: 20251226
  Transmission Date: 20260119
  Serious: No
  Sender: AMGEN
  Company Number: US-AMGEN-USASP2025250721

PATIENT
  Age: 69 Year
  Sex: Male

DRUGS (2)
  1. REPATHA [Suspect]
     Active Substance: EVOLOCUMAB
     Indication: Blood cholesterol increased
     Dosage: 140 MILLIGRAM, Q2WK
     Route: 058
     Dates: start: 20251017
  2. LIPITOR [Concomitant]
     Active Substance: ATORVASTATIN CALCIUM
     Indication: Blood cholesterol increased
     Dosage: 80 MILLIGRAM, QD
     Dates: start: 200512

REACTIONS (11)
  - Myalgia [Unknown]
  - Nasopharyngitis [Recovering/Resolving]
  - Eczema [Recovered/Resolved]
  - Intentional dose omission [Unknown]
  - Illness [Unknown]
  - Chest discomfort [Unknown]
  - Wheezing [Unknown]
  - Influenza [Unknown]
  - Arthralgia [Unknown]
  - Throat tightness [Unknown]
  - Asthenia [Unknown]

NARRATIVE: CASE EVENT DATE: 20250101
